FAERS Safety Report 23805673 (Version 1)
Quarter: 2024Q2

REPORT INFORMATION
  Report Type: Report from Study
  Country: US (occurrence: US)
  Receive Date: 20240502
  Receipt Date: 20240502
  Transmission Date: 20240717
  Serious: Yes (Other)
  Sender: FDA-Public Use
  Company Number: US-JNJFOC-20240479109

PATIENT
  Age: 78 Year
  Sex: Male
  Weight: 91.254 kg

DRUGS (1)
  1. XARELTO [Suspect]
     Active Substance: RIVAROXABAN
     Indication: Deep vein thrombosis
     Route: 048
     Dates: start: 20190401

REACTIONS (2)
  - Thrombosis [Unknown]
  - Cardiac pacemaker insertion [Unknown]
